FAERS Safety Report 4293044-4 (Version None)
Quarter: 2004Q1

REPORT INFORMATION
  Report Type: 
  Country: None (occurrence: None)
  Receive Date: 20040210
  Receipt Date: 20040129
  Transmission Date: 20041129
  Serious: Yes (Death)
  Sender: FDA-Public Use
  Company Number: US-JNJFOC-20040106006

PATIENT
  Age: 59 Year
  Sex: Male
  Weight: 83.9154 kg

DRUGS (6)
  1. REMICADE [Suspect]
     Indication: RHEUMATOID ARTHRITIS
     Dosage: 300 MG, INTRAVENOUS
     Route: 042
     Dates: start: 20030910
  2. PREDNISONE [Concomitant]
  3. VICODIN [Concomitant]
  4. PLAQUENIL [Concomitant]
  5. METHOTREXATE SODIUM [Concomitant]
  6. FLONASE [Concomitant]

REACTIONS (2)
  - CEREBROVASCULAR DISORDER [None]
  - NECROSIS [None]
